FAERS Safety Report 4942915-1 (Version None)
Quarter: 2006Q1

REPORT INFORMATION
  Report Type: 
  Country: None (occurrence: None)
  Receive Date: 20060309
  Receipt Date: 20051107
  Transmission Date: 20060701
  Serious: Yes (Hospitalization)
  Sender: FDA-Public Use
  Company Number: 2005-02708

PATIENT
  Age: 42 Year
  Sex: Male

DRUGS (13)
  1. VELCADE [Suspect]
     Indication: MULTIPLE MYELOMA
     Dosage: SEE IMAGE
     Dates: start: 20041210, end: 20041220
  2. VELCADE [Suspect]
     Indication: MULTIPLE MYELOMA
     Dosage: SEE IMAGE
     Dates: start: 20050107
  3. PREDNISOLONE [Suspect]
     Indication: MULTIPLE MYELOMA
     Dosage: 300.00 MG, QD
     Dates: start: 20041210, end: 20050114
  4. DEXAMETHASONE [Suspect]
     Indication: MULTIPLE MYELOMA
     Dosage: 40.00 MG, QD, ORAL
     Route: 048
     Dates: start: 20050204, end: 20050506
  5. CYCLOPHOSPHAMIDE [Suspect]
     Indication: MULTIPLE MYELOMA
     Dosage: 2000.00 MG, QD
     Dates: start: 20050405, end: 20050506
  6. NEXIUM [Concomitant]
  7. ETALPHA (ALFACALCIDOL) [Concomitant]
  8. NEUPOGEN [Concomitant]
  9. NEORECORMON (EPOETIN BETA) INJECTION [Concomitant]
  10. THIAMIN (THIAMINE HYDROCHLORIDE) [Concomitant]
  11. IMMUNOGLOBULINS (IMMUNOGLOBULINS) INFUSION [Concomitant]
  12. FUROSEMIDE [Concomitant]
  13. ACYCLOVIR [Concomitant]

REACTIONS (10)
  - BLOOD ALKALINE PHOSPHATASE INCREASED [None]
  - BONE LESION [None]
  - DIARRHOEA [None]
  - HAEMODIALYSIS [None]
  - HAEMOGLOBIN DECREASED [None]
  - HERPES ZOSTER [None]
  - MENINGITIS PNEUMOCOCCAL [None]
  - OSTEOLYSIS [None]
  - PERIPHERAL SENSORY NEUROPATHY [None]
  - WHITE BLOOD CELL COUNT DECREASED [None]
